FAERS Safety Report 5689890-2 (Version None)
Quarter: 2008Q1

REPORT INFORMATION
  Report Type: 
  Country: None (occurrence: None)
  Receive Date: 20080331
  Receipt Date: 20080331
  Transmission Date: 20080703
  Serious: Yes (Hospitalization)
  Sender: FDA-Public Use
  Company Number: None

PATIENT
  Sex: Male
  Weight: 68.4932 kg

DRUGS (2)
  1. XELODA [Suspect]
     Indication: NASAL SINUS CANCER
     Dosage: 1500MG BID,1 WEEK ON 1 OFF PO
     Route: 048
     Dates: start: 20071220, end: 20080221
  2. OXALIPLATIN [Suspect]
     Dosage: 155MG EVERY 3 WEEKS IV DRIP
     Route: 041

REACTIONS (4)
  - CHEST DISCOMFORT [None]
  - DYSPNOEA [None]
  - METASTASES TO LUNG [None]
  - THROAT TIGHTNESS [None]
